FAERS Safety Report 8914619 (Version 2)
Quarter: 2012Q4

REPORT INFORMATION
  Report Type: 
  Country: JP (occurrence: JP)
  Receive Date: 20121119
  Receipt Date: 20121126
  Transmission Date: 20130627
  Serious: Yes (Death)
  Sender: FDA-Public Use
  Company Number: JP-UCBSA-070567

PATIENT
  Age: 43 Year
  Sex: Male

DRUGS (1)
  1. E KEPPRA [Suspect]
     Indication: EPILEPSY
     Route: 048

REACTIONS (2)
  - Road traffic accident [Fatal]
  - Alcohol interaction [Unknown]
